FAERS Safety Report 8081689-5 (Version None)
Quarter: 2012Q1

REPORT INFORMATION
  Report Type: 
  Country: None (occurrence: None)
  Receive Date: 20120130
  Receipt Date: 20120123
  Transmission Date: 20120608
  Serious: Yes (Disabling, Other)
  Sender: FDA-Public Use
  Company Number: PHEH2011US009499

PATIENT
  Sex: Female
  Weight: 79.365 kg

DRUGS (1)
  1. GILENYA [Suspect]
     Indication: MULTIPLE SCLEROSIS
     Dosage: 0.5 MG, QD
     Route: 048
     Dates: start: 20110817, end: 20120114

REACTIONS (4)
  - HEADACHE [None]
  - FATIGUE [None]
  - CHILLS [None]
  - ASTHENIA [None]
